FAERS Safety Report 9298438 (Version 6)
Quarter: 2016Q2

REPORT INFORMATION
  Report Type: Spontaneous
  Country: US (occurrence: US)
  Receive Date: 20130520
  Receipt Date: 20160504
  Transmission Date: 20160815
  Serious: Yes (Hospitalization, Other)
  Sender: FDA-Public Use
  Company Number: US-009507513-1305USA009446

PATIENT
  Sex: Male

DRUGS (2)
  1. FINASTERIDE. [Suspect]
     Active Substance: FINASTERIDE
     Dosage: 5 MG,  1/4 TABLET
     Route: 048
     Dates: start: 20110520
  2. PROPECIA [Suspect]
     Active Substance: FINASTERIDE
     Indication: ANDROGENETIC ALOPECIA
     Dosage: 1 MG, UNK
     Route: 048
     Dates: start: 20090409

REACTIONS (18)
  - Hair transplant [Unknown]
  - Hair transplant [Unknown]
  - Stress [Unknown]
  - Homicidal ideation [Unknown]
  - Post-traumatic stress disorder [Unknown]
  - Post-traumatic stress disorder [Unknown]
  - Wrong technique in product usage process [Unknown]
  - Hyperlipidaemia [Unknown]
  - Sexual dysfunction [Not Recovered/Not Resolved]
  - Erectile dysfunction [Not Recovered/Not Resolved]
  - Major depression [Unknown]
  - Alcohol problem [Unknown]
  - Depression [Unknown]
  - Suicidal ideation [Unknown]
  - Adverse event [Unknown]
  - Hair transplant [Unknown]
  - Drug administration error [Unknown]
  - Anger [Unknown]

NARRATIVE: CASE EVENT DATE: 2009
